FAERS Safety Report 8926094 (Version 1)
Quarter: 2012Q4

REPORT INFORMATION
  Report Type: 
  Country: US (occurrence: US)
  Receive Date: 20121126
  Receipt Date: 20121126
  Transmission Date: 20130627
  Serious: Yes (Other)
  Sender: FDA-Public Use
  Company Number: US-AMGEN-USASP2012057405

PATIENT
  Age: 58 Year
  Sex: Female
  Weight: 68.03 kg

DRUGS (7)
  1. ENBREL [Suspect]
     Indication: RHEUMATOID ARTHRITIS
     Dosage: 50 mg, qwk
     Route: 058
     Dates: start: 2004
  2. METHOTREXATE [Concomitant]
     Dosage: 15 mg, qwk
     Route: 058
  3. FOLIC ACID [Concomitant]
     Dosage: 2 mg, UNK
  4. EVISTA [Concomitant]
     Dosage: 60 mg, qd
  5. CELEBREX [Concomitant]
     Dosage: 200 mg, qd
  6. CRESTOR [Concomitant]
     Dosage: 5 mg, qd
  7. BENICAR HCT [Concomitant]
     Dosage: UNK UNK, qd

REACTIONS (6)
  - Hypertension [Unknown]
  - Osteoporosis [Unknown]
  - Mouth ulceration [Unknown]
  - Musculoskeletal stiffness [Unknown]
  - Urinary tract infection [Unknown]
  - Breast cancer [Unknown]
